FAERS Safety Report 4640750-5 (Version None)
Quarter: 2005Q1

REPORT INFORMATION
  Report Type: 
  Country: None (occurrence: None)
  Receive Date: 20050322
  Receipt Date: 20040209
  Transmission Date: 20050727
  Serious: Yes (Other)
  Sender: FDA-Public Use
  Company Number: HQWYE878010FEB04

PATIENT
  Sex: Female

DRUGS (9)
  1. PROTONIX [Suspect]
     Indication: GASTROOESOPHAGEAL REFLUX DISEASE
     Dosage: 40 MG 1X PER 1 DAY, ORAL
     Route: 048
     Dates: start: 20031101, end: 20040101
  2. BENICAR [Concomitant]
  3. COMBIVENT [Concomitant]
  4. ALBUTEROL [Concomitant]
  5. ADVAIR (FLUTICASONE PROPIONATE / SALMETEROL XINAFOATE) [Concomitant]
  6. ALBUTEROL [Concomitant]
  7. FLOVENT [Concomitant]
  8. ASPIRIN [Concomitant]
  9. AMOXICILLIN [Concomitant]

REACTIONS (2)
  - CHEST PAIN [None]
  - OEDEMA PERIPHERAL [None]
